FAERS Safety Report 9643684 (Version 2)
Quarter: 2014Q1

REPORT INFORMATION
  Report Type: Spontaneous
  Country: US (occurrence: US)
  Receive Date: 20131024
  Receipt Date: 20140305
  Transmission Date: 20141002
  Serious: Yes (Hospitalization, Other)
  Sender: FDA-Public Use
  Company Number: US-BRISTOL-MYERS SQUIBB COMPANY-19554963

PATIENT
  Age: 56 Year
  Sex: Male
  Weight: 135.6 kg

DRUGS (14)
  1. BYDUREON [Suspect]
     Indication: DIABETES MELLITUS
     Route: 058
  2. ALLOPURINOL [Concomitant]
  3. GLIPIZIDE [Concomitant]
  4. LISINOPRIL [Concomitant]
     Dosage: 20MG
  5. LIPITOR [Concomitant]
     Dosage: 5MG
  6. PRILOSEC [Concomitant]
  7. BYSTOLIC [Concomitant]
  8. TRAMADOL HCL [Concomitant]
     Indication: PAIN
  9. METFORMIN [Concomitant]
  10. SIMVASTATIN [Concomitant]
  11. JANUVIA [Concomitant]
  12. ZEBETA [Concomitant]
  13. FENOFIBRATE [Concomitant]
  14. CORTISONE [Concomitant]

REACTIONS (3)
  - Pancreatitis [Unknown]
  - Duodenitis [Unknown]
  - Weight decreased [Unknown]
